FAERS Safety Report 6189520-X (Version None)
Quarter: 2009Q2

REPORT INFORMATION
  Report Type: 
  Country: None (occurrence: None)
  Receive Date: 20090512
  Receipt Date: 20090501
  Transmission Date: 20091009
  Serious: Yes (Hospitalization)
  Sender: FDA-Public Use
  Company Number: GXKR2009NL05444

PATIENT
  Age: 45 Year
  Sex: Male

DRUGS (5)
  1. CITALOPRAM HYDROBROMIDE [Suspect]
     Indication: ANXIETY DISORDER
     Dosage: 1 DF, QD, ORAL
     Route: 048
     Dates: start: 20090330, end: 20090401
  2. IMPROMEN (BROMPERIDOL LACTATE) [Suspect]
     Indication: ANXIETY DISORDER
     Dosage: ORAL
     Route: 048
     Dates: start: 20070104, end: 20090401
  3. PANTOPRAZOLE SODIUM [Concomitant]
  4. OXAZEPAM [Concomitant]
  5. METOPROLOL SUCCINATE [Concomitant]

REACTIONS (5)
  - COMA [None]
  - DRUG INTERACTION [None]
  - EPILEPSY [None]
  - HYPONATRAEMIA [None]
  - MALAISE [None]
